FAERS Safety Report 10411735 (Version 1)
Quarter: 2014Q2

REPORT INFORMATION
  Report Type: Spontaneous
  Country: US (occurrence: None)
  Receive Date: 20140604
  Receipt Date: 20140604
  Transmission Date: 20141212
  Serious: Yes (Other)
  Sender: FDA-Public Use
  Company Number: 163-POMAL-14043244

PATIENT
  Age: 56 Year
  Sex: Male

DRUGS (1)
  1. POMALYST (POMALIDOMIDE) (4 MILLIGRAM, CAPSULES) [Suspect]
     Indication: PLASMA CELL MYELOMA
     Dosage: 21 IN 21 D
     Route: 048
     Dates: start: 20140324, end: 20140413

REACTIONS (6)
  - Full blood count decreased [None]
  - Bone pain [None]
  - Nasopharyngitis [None]
  - Dizziness [None]
  - Headache [None]
  - Fatigue [None]
